FAERS Safety Report 8188510-5 (Version None)
Quarter: 2012Q1

REPORT INFORMATION
  Report Type: 
  Country: None (occurrence: None)
  Receive Date: 20120306
  Receipt Date: 20120301
  Transmission Date: 20120608
  Serious: Yes (Hospitalization, Other)
  Sender: FDA-Public Use
  Company Number: PHHY2012CA018749

PATIENT
  Sex: Female
  Weight: 72 kg

DRUGS (3)
  1. ZOLEDRONOC ACID [Suspect]
     Indication: OSTEOPOROSIS
     Dosage: UNK UKN, UNK
     Route: 042
     Dates: start: 20090325
  2. VITAMIN D [Concomitant]
     Dosage: 800 IU, UNK
     Dates: start: 19980101
  3. CALCIUM [Concomitant]
     Dosage: 1000 MG, UNK
     Dates: start: 19980101

REACTIONS (3)
  - FALL [None]
  - HIP FRACTURE [None]
  - ACTIVITIES OF DAILY LIVING IMPAIRED [None]
